FAERS Safety Report 9359927 (Version 2)
Quarter: 2014Q1

REPORT INFORMATION
  Report Type: Spontaneous
  Country: US (occurrence: None)
  Receive Date: 20130608
  Receipt Date: 20140318
  Transmission Date: 20141002
  Serious: Yes (Other)
  Sender: FDA-Public Use
  Company Number: 2013CT000019

PATIENT
  Age: 53 Year
  Sex: Female

DRUGS (7)
  1. KORLYM [Suspect]
     Indication: ANXIETY
     Route: 048
     Dates: start: 20130214, end: 201302
  2. KEPPRA [Concomitant]
  3. GUANFACINE [Concomitant]
  4. PROPRANOLOL [Concomitant]
  5. VILAZODONE [Concomitant]
  6. ESTROGEN [Concomitant]
  7. KLONOPIN [Concomitant]

REACTIONS (5)
  - Chills [None]
  - Pyrexia [None]
  - Anxiety [None]
  - Off label use [None]
  - Drug ineffective [None]
